FAERS Safety Report 12077240 (Version 2)
Quarter: 2016Q1

REPORT INFORMATION
  Report Type: Report from Study
  Country: US (occurrence: US)
  Receive Date: 20160215
  Receipt Date: 20160215
  Transmission Date: 20160526
  Serious: Yes (Death, Other)
  Sender: FDA-Public Use
  Company Number: US-BRISTOL-MYERS SQUIBB COMPANY-BMS-2016-009114

PATIENT
  Sex: Male

DRUGS (2)
  1. CYMBALTA [Concomitant]
     Active Substance: DULOXETINE HYDROCHLORIDE
     Indication: PRODUCT USED FOR UNKNOWN INDICATION
     Route: 065
  2. ARIPIPRAZOLE. [Suspect]
     Active Substance: ARIPIPRAZOLE
     Indication: STRESS
     Route: 065

REACTIONS (10)
  - Panic attack [Unknown]
  - Tremor [Unknown]
  - Heart rate increased [Unknown]
  - Weight decreased [Unknown]
  - Muscle twitching [Unknown]
  - Off label use [Unknown]
  - Hallucination [Unknown]
  - Cold sweat [Unknown]
  - Delusion [Unknown]
  - Gun shot wound [Fatal]
